FAERS Safety Report 5692825-X (Version None)
Quarter: 2008Q2

REPORT INFORMATION
  Report Type: 
  Country: None (occurrence: None)
  Receive Date: 20080401
  Receipt Date: 20080326
  Transmission Date: 20081010
  Serious: Yes (Hospitalization, Other)
  Sender: FDA-Public Use
  Company Number: URSO-2008-034

PATIENT
  Age: 48 Year
  Sex: Female

DRUGS (3)
  1. DELURSAN (URSODEOXYCHOLIC ACID) 250 MG [Suspect]
     Dosage: ORAL
     Route: 048
     Dates: start: 20071014, end: 20071021
  2. METEOSPASYMOL (ALVERINE CITRATE 60 MG, SIMETHICONE 300 MG) [Suspect]
     Dates: start: 20071014, end: 20071114
  3. SPASFON (PHLOROGLUCINOL, TRIMETHYLPHLOROGLUCINOL) [Concomitant]

REACTIONS (3)
  - ASTHENIA [None]
  - HEPATIC ENZYME INCREASED [None]
  - PRURITUS [None]
